FAERS Safety Report 19900907 (Version 3)
Quarter: 2021Q4

REPORT INFORMATION
  Report Type: Report from Study
  Country: US (occurrence: US)
  Receive Date: 20210929
  Receipt Date: 20211019
  Transmission Date: 20220303
  Serious: Yes (Hospitalization, Other)
  Sender: FDA-Public Use
  Company Number: US-BRISTOL-MYERS SQUIBB COMPANY-BMS-2021-097804

PATIENT
  Age: 68 Year
  Sex: Female
  Weight: 64.2 kg

DRUGS (3)
  1. NIVOLUMAB [Suspect]
     Active Substance: NIVOLUMAB
     Indication: Breast cancer metastatic
     Dosage: UNK, Q2WK
     Route: 065
     Dates: end: 20210914
  2. IPILIMUMAB [Suspect]
     Active Substance: IPILIMUMAB
     Indication: Breast cancer metastatic
     Dosage: UNK, Q6WK
     Route: 065
     Dates: end: 20210831
  3. BICALUTAMIDE [Suspect]
     Active Substance: BICALUTAMIDE
     Indication: Breast cancer metastatic
     Dosage: UNK, QD
     Route: 048

REACTIONS (3)
  - Clostridium difficile colitis [Unknown]
  - Gastroenteritis Escherichia coli [Unknown]
  - Immune-mediated enterocolitis [Unknown]

NARRATIVE: CASE EVENT DATE: 20210901
